FAERS Safety Report 9210776 (Version 2)
Quarter: 2013Q2

REPORT INFORMATION
  Report Type: Spontaneous
  Country: JP (occurrence: JP)
  Receive Date: 20130404
  Receipt Date: 20130418
  Transmission Date: 20140414
  Serious: Yes (Hospitalization)
  Sender: FDA-Public Use
  Company Number: JP-GLAXOSMITHKLINE-B0879940A

PATIENT
  Age: 7 Decade
  Sex: Male

DRUGS (3)
  1. ZOVIRAX [Suspect]
     Indication: UVEITIS
     Route: 042
  2. PROGRAF [Concomitant]
     Route: 065
  3. GANCICLOVIR [Concomitant]
     Route: 048

REACTIONS (1)
  - Cerebral infarction [Unknown]
